FAERS Safety Report 5917917-9 (Version None)
Quarter: 2008Q4

REPORT INFORMATION
  Report Type: 
  Country: None (occurrence: None)
  Receive Date: 20081014
  Receipt Date: 20081003
  Transmission Date: 20090506
  Serious: Yes (Hospitalization, Other)
  Sender: FDA-Public Use
  Company Number: DK-PFIZER INC-2008072813

PATIENT
  Sex: Female
  Weight: 98 kg

DRUGS (11)
  1. ZARATOR [Suspect]
     Indication: HYPERCHOLESTEROLAEMIA
     Dosage: DAILY DOSE:40MG-FREQ:DAILY
     Route: 048
     Dates: start: 20050101, end: 20080724
  2. SIMVASTATIN [Suspect]
     Route: 048
     Dates: start: 20030101, end: 20050101
  3. NOVOLOG MIX 70/30 [Concomitant]
     Route: 058
     Dates: start: 20070102
  4. METFORMIN [Concomitant]
     Route: 048
     Dates: start: 20070515
  5. KALEORID [Concomitant]
     Route: 048
     Dates: start: 20070102
  6. PLAVIX [Concomitant]
     Route: 048
     Dates: start: 20070102
  7. FURIX [Concomitant]
     Route: 048
     Dates: start: 20070102
  8. SELO-ZOK [Concomitant]
     Route: 048
     Dates: start: 20070102
  9. NORVASC [Concomitant]
     Route: 048
     Dates: start: 20070102, end: 20071001
  10. VALSARTAN [Concomitant]
     Route: 048
     Dates: start: 20070102
  11. ZANIDIP [Concomitant]

REACTIONS (13)
  - AMNESIA [None]
  - ANXIETY [None]
  - ARTHRALGIA [None]
  - DISTURBANCE IN ATTENTION [None]
  - INSOMNIA [None]
  - MENTAL DISORDER [None]
  - MYALGIA [None]
  - NIGHTMARE [None]
  - PNEUMONIA [None]
  - RESPIRATORY TRACT INFECTION [None]
  - SKIN DISORDER [None]
  - TREMOR [None]
  - VERTIGO [None]
